FAERS Safety Report 7726842-2 (Version None)
Quarter: 2011Q3

REPORT INFORMATION
  Report Type: 
  Country: None (occurrence: None)
  Receive Date: 20110902
  Receipt Date: 20110307
  Transmission Date: 20111222
  Serious: No
  Sender: FDA-Public Use
  Company Number: US-BAYER-2011-020622

PATIENT
  Sex: Female

DRUGS (3)
  1. MIRENA [Suspect]
     Indication: UTERINE LEIOMYOMA
  2. MIRENA [Suspect]
     Indication: MENORRHAGIA
     Dosage: 20 MCG/24HR, CONT
     Route: 015
     Dates: start: 20101101
  3. THYROID MEDICATION [Concomitant]
     Indication: THYROID DISORDER

REACTIONS (8)
  - PAIN [None]
  - BACK PAIN [None]
  - NAUSEA [None]
  - WEIGHT INCREASED [None]
  - HEADACHE [None]
  - ARTHRALGIA [None]
  - HYPOTHYROIDISM [None]
  - VAGINAL HAEMORRHAGE [None]
